FAERS Safety Report 18831122 (Version 2)
Quarter: 2021Q2

REPORT INFORMATION
  Report Type: Other
  Country: AR (occurrence: AR)
  Receive Date: 20210203
  Receipt Date: 20210402
  Transmission Date: 20210717
  Serious: Yes (Other)
  Sender: FDA-Public Use
  Company Number: AR-ROCHE-2760878

PATIENT
  Age: 10 Year
  Sex: Female

DRUGS (6)
  1. CETIRIZINE [Suspect]
     Active Substance: CETIRIZINE HYDROCHLORIDE
     Indication: PRODUCT USED FOR UNKNOWN INDICATION
     Dosage: 20 DRP, QD
     Route: 065
  2. XOLAIR [Suspect]
     Active Substance: OMALIZUMAB
     Indication: ASTHMA
     Route: 058
     Dates: start: 20151101
  3. XOLAIR [Suspect]
     Active Substance: OMALIZUMAB
     Dosage: UNK
     Route: 065
  4. XOLAIR [Suspect]
     Active Substance: OMALIZUMAB
     Indication: RESPIRATORY DISORDER
     Route: 065
     Dates: start: 201602
  5. DIPHENHYDRAMINE. [Concomitant]
     Active Substance: DIPHENHYDRAMINE
     Indication: HYPERSENSITIVITY
     Dosage: 1 DF, QD
     Route: 065
  6. XOLAIR [Suspect]
     Active Substance: OMALIZUMAB
     Route: 058
     Dates: start: 20180405

REACTIONS (13)
  - Pyrexia [Recovered/Resolved]
  - Secretion discharge [Recovering/Resolving]
  - Malaise [Recovered/Resolved]
  - Asthma [Unknown]
  - Asthmatic crisis [Recovered/Resolved]
  - Asthmatic crisis [Not Recovered/Not Resolved]
  - Somnolence [Recovering/Resolving]
  - Bronchiolitis [Recovered/Resolved]
  - Bronchospasm [Recovering/Resolving]
  - Chest discomfort [Recovering/Resolving]
  - Cough [Recovering/Resolving]
  - Dyspnoea [Not Recovered/Not Resolved]
  - Fatigue [Recovering/Resolving]

NARRATIVE: CASE EVENT DATE: 201705
